FAERS Safety Report 4578833-0 (Version None)
Quarter: 2005Q1

REPORT INFORMATION
  Report Type: 
  Country: None (occurrence: None)
  Receive Date: 20050211
  Receipt Date: 20050103
  Transmission Date: 20050727
  Serious: Yes (Death)
  Sender: FDA-Public Use
  Company Number: FR-BRISTOL-MYERS SQUIBB COMPANY-12812525

PATIENT
  Age: 61 Year
  Sex: Female
  Weight: 66 kg

DRUGS (2)
  1. TAXOL [Suspect]
     Indication: OVARIAN CANCER
     Route: 042
     Dates: start: 20031203, end: 20031203
  2. SOLUPRED [Concomitant]
     Dates: start: 20031202, end: 20031203

REACTIONS (2)
  - CARDIOGENIC SHOCK [None]
  - RESUSCITATION [None]
